FAERS Safety Report 8230262-4 (Version None)
Quarter: 2012Q1

REPORT INFORMATION
  Report Type: 
  Country: None (occurrence: None)
  Receive Date: 20120321
  Receipt Date: 20120321
  Transmission Date: 20120608
  Serious: Yes (Other)
  Sender: FDA-Public Use
  Company Number: None

PATIENT
  Sex: Female

DRUGS (1)
  1. OLANZAPINE [Suspect]
     Dosage: 2.5 MG  1 QH.S. ORAL
     Route: 048

REACTIONS (13)
  - HYPERHIDROSIS [None]
  - PRODUCT SUBSTITUTION ISSUE [None]
  - INSOMNIA [None]
  - CONDITION AGGRAVATED [None]
  - ACTIVITIES OF DAILY LIVING IMPAIRED [None]
  - ANXIETY [None]
  - FATIGUE [None]
  - OBSESSIVE THOUGHTS [None]
  - MALAISE [None]
  - PYREXIA [None]
  - FIBROMYALGIA [None]
  - BLOOD GLUCOSE INCREASED [None]
  - POLLAKIURIA [None]
